FAERS Safety Report 5016975-6 (Version None)
Quarter: 2006Q2

REPORT INFORMATION
  Report Type: 
  Country: None (occurrence: None)
  Receive Date: 20060525
  Receipt Date: 20060522
  Transmission Date: 20061013
  Serious: Yes (Hospitalization)
  Sender: FDA-Public Use
  Company Number: S06-USA-01914-01

PATIENT
  Age: 82 Year
  Sex: Female

DRUGS (1)
  1. LEXAPRO [Suspect]
     Dates: start: 20060101

REACTIONS (1)
  - BRADYCARDIA [None]
